FAERS Safety Report 4535183-6 (Version None)
Quarter: 2004Q4

REPORT INFORMATION
  Report Type: 
  Country: None (occurrence: None)
  Receive Date: 20041222
  Receipt Date: 20041216
  Transmission Date: 20050328
  Serious: Yes (Hospitalization)
  Sender: FDA-Public Use
  Company Number: US-MERCK-0412USA02081

PATIENT
  Age: 74 Year
  Sex: Female

DRUGS (4)
  1. VIOXX [Suspect]
     Route: 048
     Dates: start: 19950101
  2. PREMARIN [Concomitant]
     Route: 065
  3. SYNTHROID [Concomitant]
     Route: 065
  4. [THERAPY UNSPECIFIED] [Concomitant]
     Route: 065

REACTIONS (3)
  - ADVERSE EVENT [None]
  - BENIGN NEOPLASM [None]
  - RECTOCELE [None]
